FAERS Safety Report 5636160-4 (Version None)
Quarter: 2008Q1

REPORT INFORMATION
  Report Type: 
  Country: None (occurrence: None)
  Receive Date: 20080220
  Receipt Date: 20080220
  Transmission Date: 20080703
  Serious: Yes (Other)
  Sender: FDA-Public Use
  Company Number: None

PATIENT
  Age: 45 Year
  Sex: Male
  Weight: 99.7913 kg

DRUGS (1)
  1. CHANTIX [Suspect]
     Indication: SMOKING CESSATION THERAPY
     Dosage: .5MG 2 PO
     Route: 048
     Dates: start: 20080205, end: 20080215

REACTIONS (5)
  - AMNESIA [None]
  - DISORIENTATION [None]
  - ELEVATED MOOD [None]
  - MANIA [None]
  - SPEECH DISORDER [None]
